FAERS Safety Report 11589432 (Version 1)
Quarter: 2015Q4

REPORT INFORMATION
  Report Type: Report from Study
  Country: VE (occurrence: VE)
  Receive Date: 20151002
  Receipt Date: 20151002
  Transmission Date: 20160304
  Serious: Yes (Death, Other)
  Sender: FDA-Public Use
  Company Number: VE-SA-2015SA150549

PATIENT
  Age: 97 Year
  Sex: Female

DRUGS (1)
  1. PLAVIX [Suspect]
     Active Substance: CLOPIDOGREL BISULFATE
     Indication: CEREBROVASCULAR ACCIDENT
     Route: 065
     Dates: start: 2000, end: 20150501

REACTIONS (2)
  - Death [Fatal]
  - Fracture [Unknown]

NARRATIVE: CASE EVENT DATE: 2015
